FAERS Safety Report 5789055-X (Version None)
Quarter: 2008Q2

REPORT INFORMATION
  Report Type: 
  Country: None (occurrence: None)
  Receive Date: 20080626
  Receipt Date: 20080619
  Transmission Date: 20081010
  Serious: Yes (Life-Threatening)
  Sender: FDA-Public Use
  Company Number: B0526170A

PATIENT
  Age: 80 Year
  Sex: Female

DRUGS (10)
  1. AUGMENTIN '125' [Suspect]
     Indication: DRUG USE FOR UNKNOWN INDICATION
     Route: 042
     Dates: start: 20080213
  2. HYPNOVEL [Concomitant]
     Route: 042
     Dates: start: 20080213
  3. DIPRIVAN [Concomitant]
     Route: 042
     Dates: start: 20080213
  4. KETAMINE HCL [Concomitant]
     Route: 042
     Dates: start: 20080213
  5. SUFENTA [Concomitant]
     Route: 042
     Dates: start: 20080213
  6. ATROPINE [Concomitant]
     Indication: DRUG USE FOR UNKNOWN INDICATION
     Route: 065
     Dates: start: 20080213
  7. DESFLURANE [Concomitant]
     Route: 065
     Dates: start: 20080213
  8. RINGER LACTATE [Concomitant]
     Indication: DRUG USE FOR UNKNOWN INDICATION
     Route: 065
     Dates: start: 20080213
  9. ATARAX [Concomitant]
     Indication: PREMEDICATION
     Route: 065
     Dates: start: 20080213, end: 20080213
  10. XANAX [Concomitant]
     Indication: PREMEDICATION
     Route: 065
     Dates: start: 20080213, end: 20080213

REACTIONS (5)
  - ANAPHYLACTIC SHOCK [None]
  - CIRCULATORY COLLAPSE [None]
  - ERYTHEMA [None]
  - HYPOTENSION [None]
  - TACHYCARDIA [None]
